FAERS Safety Report 19815683 (Version 1)
Quarter: 2021Q3

REPORT INFORMATION
  Report Type: Spontaneous
  Country: GB (occurrence: GB)
  Receive Date: 20210910
  Receipt Date: 20210910
  Transmission Date: 20211014
  Serious: Yes (Other)
  Sender: FDA-Public Use
  Company Number: GB-ABBVIE-17K-167-3068614-00

PATIENT

DRUGS (1)
  1. IMBRUVICA [Suspect]
     Active Substance: IBRUTINIB
     Indication: MANTLE CELL LYMPHOMA REFRACTORY
     Route: 048

REACTIONS (15)
  - Fatigue [Unknown]
  - Contusion [Unknown]
  - Haemorrhage [Unknown]
  - Neutropenia [Unknown]
  - Arrhythmia [Unknown]
  - Folliculitis [Unknown]
  - Infection [Unknown]
  - Renal impairment [Unknown]
  - Cardiac failure [Unknown]
  - Anaemia [Unknown]
  - Arthralgia [Unknown]
  - Diarrhoea [Unknown]
  - Thrombocytopenia [Unknown]
  - Atrial fibrillation [Unknown]
  - Rash [Unknown]
